FAERS Safety Report 18101200 (Version 7)
Quarter: 2025Q3

REPORT INFORMATION
  Report Type: Spontaneous
  Country: EU (occurrence: EU)
  Receive Date: 20200801
  Receipt Date: 20250829
  Transmission Date: 20251020
  Serious: Yes (Other)
  Sender: NOVARTIS
  Company Number: EU-ROCHE-2647773

PATIENT
  Age: 53 Year
  Sex: Female
  Weight: 54 kg

DRUGS (57)
  1. VINORELBINE [Suspect]
     Active Substance: VINORELBINE TARTRATE
     Indication: HER2 positive breast cancer
     Dosage: 25 MG/M2,Q3W
     Route: 042
     Dates: start: 20200218
  2. DOCETAXEL [Suspect]
     Active Substance: DOCETAXEL
     Indication: HER2 positive breast cancer
     Dosage: 75 MG/M2,Q3W (MOST DOSE PRIOR TO EVENT 19 DEC 2018)
     Route: 042
     Dates: start: 20170804, end: 201711
  3. LAPATINIB [Suspect]
     Active Substance: LAPATINIB
     Indication: HER2 positive breast cancer
     Dosage: 1250 MG,QD
     Route: 048
     Dates: start: 20191125, end: 20191125
  4. TYKERB [Suspect]
     Active Substance: LAPATINIB DITOSYLATE
     Indication: HER2 positive breast cancer
     Dosage: 1250 MG, QD
     Route: 048
     Dates: start: 20191125, end: 20191125
  5. TRASTUZUMAB [Suspect]
     Active Substance: TRASTUZUMAB
     Indication: HER2 positive breast cancer
     Dosage: 8 MG/KG,QD
     Route: 065
     Dates: start: 20170804, end: 20170804
  6. XGEVA [Suspect]
     Active Substance: DENOSUMAB
     Indication: HER2 positive breast cancer
     Dosage: 120 MG,Q4W
     Route: 058
     Dates: start: 20181219
  7. PERTUZUMAB [Suspect]
     Active Substance: PERTUZUMAB
     Indication: HER2 positive breast cancer
     Dosage: 840 MG,QD
     Route: 042
     Dates: start: 20170804, end: 20170804
  8. ADO-TRASTUZUMAB EMTANSINE [Suspect]
     Active Substance: ADO-TRASTUZUMAB EMTANSINE
     Indication: HER2 positive breast cancer
     Route: 042
     Dates: start: 20180830, end: 201811
  9. DOCETAXEL [Suspect]
     Active Substance: DOCETAXEL
     Indication: HER2 positive breast cancer
     Route: 065
     Dates: start: 20181219, end: 20190503
  10. DOCETAXEL [Suspect]
     Active Substance: DOCETAXEL
     Dosage: 225 MG/M2, QW (~75.000MG/M2 TIW  )
     Route: 042
     Dates: start: 20170804, end: 201711
  11. DOCETAXEL [Suspect]
     Active Substance: DOCETAXEL
     Dosage: 225 MG/M2, QW (~75.000MG/M2 TIW  )
     Route: 042
     Dates: start: 20170804, end: 201711
  12. DOCETAXEL [Suspect]
     Active Substance: DOCETAXEL
     Dosage: 360 MG, QW (120.000MG TIW  )
     Route: 042
     Dates: start: 20181219, end: 20190503
  13. DOCETAXEL [Suspect]
     Active Substance: DOCETAXEL
     Dosage: 360 MG, QW (120.000MG TIW  )
     Route: 042
     Dates: start: 20181219, end: 20190503
  14. DOCETAXEL [Suspect]
     Active Substance: DOCETAXEL
     Dosage: 225 MG/M2, QW (~75 MG/M2,Q3W (MOST DOSE PRIOR TO EVENT 19 DEC 2018)
     Route: 042
     Dates: start: 20170804, end: 201711
  15. CAPECITABINE [Suspect]
     Active Substance: CAPECITABINE
     Indication: Breast cancer
     Dosage: 2000 MG,Q3W
     Route: 048
     Dates: start: 20190530, end: 20191125
  16. CAPECITABINE [Suspect]
     Active Substance: CAPECITABINE
     Indication: HER2 positive breast cancer
  17. NOLVADEX [Suspect]
     Active Substance: TAMOXIFEN CITRATE
     Indication: HER2 positive breast cancer
     Dosage: 20 MG, QD
     Route: 048
     Dates: start: 201610, end: 201706
  18. TAXOTERE [Suspect]
     Active Substance: DOCETAXEL
     Indication: HER2 positive breast cancer
     Route: 042
     Dates: start: 20181219, end: 20190503
  19. TAXOTERE [Suspect]
     Active Substance: DOCETAXEL
     Dosage: 225 MG/M2, QW (75.000MG/M2 TIW  )
     Route: 042
     Dates: start: 20170804, end: 201711
  20. TAXOTERE [Suspect]
     Active Substance: DOCETAXEL
     Dosage: 225 MG/M2, QW (75.000MG/M2 TIW)
     Route: 042
     Dates: start: 20170804, end: 201711
  21. TAXOTERE [Suspect]
     Active Substance: DOCETAXEL
     Dosage: 360 MG, QW (120.000MG TIW)
     Route: 042
     Dates: start: 20181219, end: 20190503
  22. TAXOTERE [Suspect]
     Active Substance: DOCETAXEL
     Dosage: 225 MG/M2, QW (75 MG/M2,Q3W (MOST DOSE PRIOR TO EVENT 19 DEC 2018)), IV DRIP
     Route: 042
     Dates: start: 20170804, end: 201711
  23. TAXOTERE [Suspect]
     Active Substance: DOCETAXEL
     Dosage: 360 MG, QW (120.000MG TIW  )
     Route: 042
     Dates: start: 20181219, end: 20190503
  24. VINORELBINE TARTRATE [Suspect]
     Active Substance: VINORELBINE TARTRATE
     Indication: Product used for unknown indication
     Dosage: 25 MG/M2, TIW
     Route: 042
     Dates: start: 20200218, end: 20201009
  25. VINORELBINE TARTRATE [Suspect]
     Active Substance: VINORELBINE TARTRATE
     Dosage: 75 MG/M2, TIW
     Route: 042
     Dates: start: 20170804, end: 201711
  26. HERCEPTIN [Suspect]
     Active Substance: TRASTUZUMAB
     Indication: HER2 positive breast cancer
     Dosage: 8 MG/KG, QD
     Route: 042
     Dates: start: 20170804, end: 20170804
  27. HERCEPTIN [Suspect]
     Active Substance: TRASTUZUMAB
     Dosage: 600 MG, Q3W
     Route: 042
     Dates: start: 20181219, end: 20191111
  28. HERCEPTIN [Suspect]
     Active Substance: TRASTUZUMAB
     Dosage: 6 MG/KG, Q3W
     Route: 042
     Dates: start: 20200218, end: 20201009
  29. HERCEPTIN [Suspect]
     Active Substance: TRASTUZUMAB
     Dosage: 6 MG/KG, Q3W
     Route: 042
     Dates: start: 20170824, end: 20180808
  30. HERCEPTIN [Suspect]
     Active Substance: TRASTUZUMAB
     Dosage: 25 MG/M2, TIW
     Route: 042
     Dates: start: 20200218, end: 20201009
  31. HERCEPTIN [Suspect]
     Active Substance: TRASTUZUMAB
     Dosage: 18 MG/KG, QW
     Route: 042
     Dates: start: 20170824, end: 20180808
  32. HERCEPTIN [Suspect]
     Active Substance: TRASTUZUMAB
     Dosage: 600 MG, TIW
     Route: 042
     Dates: start: 20181219, end: 20191111
  33. KADCYLA [Suspect]
     Active Substance: ADO-TRASTUZUMAB EMTANSINE
     Indication: HER2 positive breast cancer
     Dosage: 200 MG, Q3W
     Route: 042
     Dates: start: 20180830, end: 201811
  34. KADCYLA [Suspect]
     Active Substance: ADO-TRASTUZUMAB EMTANSINE
     Dosage: 8 MG/KG, QD
     Route: 042
     Dates: start: 20170804, end: 20170804
  35. PERJETA [Suspect]
     Active Substance: PERTUZUMAB
     Indication: HER2 positive breast cancer
     Dosage: 420 MG, Q3W
     Route: 042
     Dates: start: 20170824, end: 20180808
  36. PERJETA [Suspect]
     Active Substance: PERTUZUMAB
     Dosage: 420 MG, TIW
     Route: 042
     Dates: start: 20190404, end: 20190624
  37. PERJETA [Suspect]
     Active Substance: PERTUZUMAB
     Dosage: 840 MG, QD
     Route: 042
     Dates: start: 20170804, end: 20170804
  38. PERJETA [Suspect]
     Active Substance: PERTUZUMAB
     Dosage: 600 MG, Q3W
     Route: 042
     Dates: start: 20181219, end: 20191111
  39. GOSERELIN [Suspect]
     Active Substance: GOSERELIN
     Indication: HER2 positive breast cancer
     Dosage: 3.6 MG, Q4W
     Route: 058
     Dates: start: 201610, end: 201706
  40. GOSERELIN [Suspect]
     Active Substance: GOSERELIN
     Dosage: 6 MG/KG, Q3W
     Route: 065
     Dates: start: 20201208
  41. MORPHINE [Concomitant]
     Active Substance: MORPHINE
     Indication: Product used for unknown indication
     Dosage: 200 MG (200 MG 200 MG, Q3W
     Route: 042
     Dates: start: 20180830, end: 201811
  42. MORPHINE [Concomitant]
     Active Substance: MORPHINE
     Route: 065
  43. MORPHINE [Concomitant]
     Active Substance: MORPHINE
     Route: 065
  44. FENTANYL CITRATE [Concomitant]
     Active Substance: FENTANYL CITRATE
     Indication: Product used for unknown indication
     Route: 065
  45. GENTAMICIN [Concomitant]
     Active Substance: GENTAMICIN
     Indication: Product used for unknown indication
     Route: 048
     Dates: start: 20200421, end: 20200508
  46. GENTAMICIN [Concomitant]
     Active Substance: GENTAMICIN
     Dosage: 420 MG, Q3W
     Route: 042
     Dates: start: 20170824, end: 20180808
  47. RINGERS SOLUTION [Concomitant]
     Active Substance: CALCIUM CHLORIDE\POTASSIUM CHLORIDE\SODIUM CHLORIDE
     Indication: Product used for unknown indication
     Route: 042
     Dates: start: 20200421, end: 20200508
  48. RINGERS SOLUTION [Concomitant]
     Active Substance: CALCIUM CHLORIDE\POTASSIUM CHLORIDE\SODIUM CHLORIDE
     Dosage: 840 MG, QD
     Route: 042
     Dates: start: 20170804, end: 20170804
  49. VANCOMYCIN [Concomitant]
     Active Substance: VANCOMYCIN
     Indication: Product used for unknown indication
     Dosage: 500 MG, QD
     Route: 048
     Dates: start: 20200512, end: 20200528
  50. VANCOMYCIN [Concomitant]
     Active Substance: VANCOMYCIN
     Dosage: 3.6 MG, Q4W
     Route: 058
     Dates: start: 201610, end: 201706
  51. METRONIDAZOLE [Concomitant]
     Active Substance: METRONIDAZOLE
     Indication: Product used for unknown indication
     Route: 048
     Dates: start: 20200512, end: 20200518
  52. METRONIDAZOLE [Concomitant]
     Active Substance: METRONIDAZOLE
     Route: 042
     Dates: start: 20200421, end: 20200508
  53. MANNITOL [Concomitant]
     Active Substance: MANNITOL
     Indication: Product used for unknown indication
     Route: 042
     Dates: start: 20200421, end: 20200508
  54. MANNITOL [Concomitant]
     Active Substance: MANNITOL
     Dosage: 6 MG/KG, Q3W
     Route: 042
     Dates: start: 20170824, end: 20180808
  55. FAMOTIDINE [Concomitant]
     Active Substance: FAMOTIDINE
     Indication: Gastrointestinal bacterial infection
     Dosage: 40 MG, QD
     Route: 042
     Dates: start: 20200512, end: 20200528
  56. XGEVA [Concomitant]
     Active Substance: DENOSUMAB
     Indication: Product used for unknown indication
     Dosage: 40 MG, QD
     Dates: start: 20200512, end: 20200528
  57. XGEVA [Concomitant]
     Active Substance: DENOSUMAB
     Route: 058
     Dates: start: 201808, end: 20201009

REACTIONS (5)
  - Metastases to spine [Recovered/Resolved]
  - Compression fracture [Recovered/Resolved]
  - Paraparesis [Recovered/Resolved]
  - Gastrointestinal bacterial infection [Recovered/Resolved]
  - Pelvic pain [Not Recovered/Not Resolved]

NARRATIVE: CASE EVENT DATE: 20191201
